FAERS Safety Report 10375473 (Version 1)
Quarter: 2014Q3

REPORT INFORMATION
  Report Type: Spontaneous
  Country: CA (occurrence: None)
  Receive Date: 20140806
  Receipt Date: 20140806
  Transmission Date: 20150326
  Serious: Yes (Other)
  Sender: FDA-Public Use
  Company Number: BD-2014-0047

PATIENT
  Age: 13 Year

DRUGS (6)
  1. ANTICHOLINERGICS [Concomitant]
     Active Substance: UNSPECIFIED INGREDIENT
  2. VECURONIUM [Concomitant]
     Active Substance: VECURONIUM BROMIDE
  3. SEVOFLURANE. [Concomitant]
     Active Substance: SEVOFLURANE
  4. ANTICHOLINESTERASES [Concomitant]
     Active Substance: UNSPECIFIED INGREDIENT
  5. ONDANSETRON [Suspect]
     Active Substance: ONDANSETRON
     Indication: PROPHYLAXIS OF NAUSEA AND VOMITING
     Route: 042
  6. DESFLURANE [Concomitant]
     Active Substance: DESFLURANE

REACTIONS (2)
  - Ventricular tachycardia [None]
  - Extrasystoles [None]
